FAERS Safety Report 5693229-6 (Version None)
Quarter: 2008Q2

REPORT INFORMATION
  Report Type: 
  Country: None (occurrence: None)
  Receive Date: 20080403
  Receipt Date: 20080328
  Transmission Date: 20081010
  Serious: Yes (Hospitalization)
  Sender: FDA-Public Use
  Company Number: US-KINGPHARMUSA00001-K200800244

PATIENT

DRUGS (3)
  1. RAMIPRIL [Suspect]
     Dosage: 5MG QD
     Route: 048
     Dates: start: 20040101, end: 20060101
  2. RAMIPRIL [Suspect]
     Dosage: 5 MG, UNK
     Route: 048
     Dates: start: 20060101, end: 20080201
  3. SPIFEN [Concomitant]
     Indication: DENTAL DISCOMFORT
     Dosage: UNK, PRN
     Dates: start: 20071001, end: 20071001

REACTIONS (4)
  - ARTHRALGIA [None]
  - AUTOIMMUNE HEPATITIS [None]
  - DEPRESSION [None]
  - FATIGUE [None]
